FAERS Safety Report 8245551-7 (Version None)
Quarter: 2012Q1

REPORT INFORMATION
  Report Type: 
  Country: None (occurrence: None)
  Receive Date: 20120329
  Receipt Date: 20120323
  Transmission Date: 20120608
  Serious: Yes (Other)
  Sender: FDA-Public Use
  Company Number: BR-ASTRAZENECA-2012SE19993

PATIENT
  Sex: Male

DRUGS (6)
  1. SOMALGIN CARDIO [Concomitant]
     Route: 048
  2. SIMVASTATIN [Concomitant]
     Route: 048
  3. BRILINTA [Suspect]
     Route: 048
     Dates: start: 20111210
  4. LOSARTAN POTASSIUM [Concomitant]
     Route: 048
  5. GLUCOVANCE [Concomitant]
     Dosage: 500/5  MG THREE TIMES A DAY
     Route: 048
  6. AMLODIPINE [Concomitant]
     Route: 048

REACTIONS (4)
  - DIZZINESS [None]
  - FATIGUE [None]
  - RED BLOOD CELL ABNORMALITY [None]
  - PRURITUS GENERALISED [None]
